FAERS Safety Report 9870548 (Version 1)
Quarter: 2014Q1

REPORT INFORMATION
  Report Type: Spontaneous
  Country: US (occurrence: None)
  Receive Date: 20140204
  Receipt Date: 20140204
  Transmission Date: 20141002
  Serious: Yes (Other)
  Sender: FDA-Public Use
  Company Number: None

PATIENT
  Age: 18 Year
  Sex: Female
  Weight: 74.39 kg

DRUGS (2)
  1. MUCINEX D MAXIMUM STRENGTH [Suspect]
     Indication: SINUS CONGESTION
     Route: 048
     Dates: start: 20140130, end: 20140203
  2. MUCINEX D MAXIMUM STRENGTH [Suspect]
     Indication: SINUSITIS
     Route: 048
     Dates: start: 20140130, end: 20140203

REACTIONS (4)
  - Palpitations [None]
  - Dizziness [None]
  - Asthenia [None]
  - Urine output decreased [None]
